FAERS Safety Report 16703723 (Version 2)
Quarter: 2019Q3

REPORT INFORMATION
  Report Type: Spontaneous
  Country: US (occurrence: US)
  Receive Date: 20190814
  Receipt Date: 20190905
  Transmission Date: 20191004
  Serious: No
  Sender: FDA-Public Use
  Company Number: US-TEIKOKU PHARMA USA-TPU2019-00582

PATIENT
  Sex: Female
  Weight: 79.45 kg

DRUGS (4)
  1. MOTRIN [Concomitant]
     Active Substance: IBUPROFEN
     Dates: start: 20190805
  2. PERCOCET [Concomitant]
     Active Substance: ACETAMINOPHEN\OXYCODONE HYDROCHLORIDE
     Indication: PAIN
     Dosage: 10/325MG ONE EVERY 4 TO 6 HOURS
     Dates: start: 20190805
  3. ROBOXIN [Concomitant]
     Indication: MUSCLE SPASMS
     Dates: start: 20190805
  4. LIDOCAINE PATCH [Suspect]
     Active Substance: LIDOCAINE
     Indication: RIB FRACTURE
     Route: 061
     Dates: start: 20190805

REACTIONS (3)
  - Drug ineffective [Unknown]
  - Inappropriate schedule of product administration [Unknown]
  - Mobility decreased [Not Recovered/Not Resolved]
